FAERS Safety Report 18256327 (Version 1)
Quarter: 2020Q3

REPORT INFORMATION
  Report Type: Spontaneous
  Country: US (occurrence: US)
  Receive Date: 20200910
  Receipt Date: 20200910
  Transmission Date: 20201103
  Serious: Yes (Other)
  Sender: FDA-Public Use
  Company Number: None

PATIENT
  Age: 80 Year
  Sex: Female
  Weight: 109.1 kg

DRUGS (22)
  1. LIDOCAINE PATCH [Concomitant]
     Active Substance: LIDOCAINE
  2. ASCORBIC ACID. [Concomitant]
     Active Substance: ASCORBIC ACID
  3. CHOLECALCIFEROL [Concomitant]
     Active Substance: CHOLECALCIFEROL
  4. HYDROCODONE?ACETAMINOPHEN [Concomitant]
     Active Substance: ACETAMINOPHEN\HYDROCODONE
  5. PANTOPRAZOLE [Concomitant]
     Active Substance: PANTOPRAZOLE
  6. REMDESIVIR. [Suspect]
     Active Substance: REMDESIVIR
     Indication: COVID-19
     Route: 042
     Dates: start: 20200908
  7. AMLODIPINE [Concomitant]
     Active Substance: AMLODIPINE BESYLATE
  8. FENTANYL. [Concomitant]
     Active Substance: FENTANYL
  9. GABAPENTIN. [Concomitant]
     Active Substance: GABAPENTIN
  10. LEVETIRACETAM. [Concomitant]
     Active Substance: LEVETIRACETAM
  11. LEVOTHYROXINE. [Concomitant]
     Active Substance: LEVOTHYROXINE
  12. FAMOTIDINE. [Concomitant]
     Active Substance: FAMOTIDINE
  13. DEXAMETHASONE. [Concomitant]
     Active Substance: DEXAMETHASONE
  14. ENOXAPARIN [Concomitant]
     Active Substance: ENOXAPARIN
  15. FUROSEMIDE. [Concomitant]
     Active Substance: FUROSEMIDE
  16. VENLAFAXINE [Concomitant]
     Active Substance: VENLAFAXINE HYDROCHLORIDE
  17. ACETYLCYSTEINE. [Concomitant]
     Active Substance: ACETYLCYSTEINE
  18. CLONAZEPAM. [Concomitant]
     Active Substance: CLONAZEPAM
  19. DONEPEZIL. [Concomitant]
     Active Substance: DONEPEZIL
  20. IMIPRAMINE [Concomitant]
     Active Substance: IMIPRAMINE
  21. DICYCLOMINE [Concomitant]
     Active Substance: DICYCLOMINE HYDROCHLORIDE
  22. IPRATROPIUM?ALBUTEROL [Concomitant]
     Active Substance: ALBUTEROL\IPRATROPIUM

REACTIONS (2)
  - Ventricular extrasystoles [None]
  - Ventricular tachycardia [None]

NARRATIVE: CASE EVENT DATE: 20200908
